FAERS Safety Report 9337074 (Version 1)
Quarter: 2013Q2

REPORT INFORMATION
  Report Type: Other
  Country: US (occurrence: US)
  Receive Date: 20130607
  Receipt Date: 20130607
  Transmission Date: 20140414
  Serious: Yes (Death)
  Sender: FDA-Public Use
  Company Number: US-NAPPMUNDI-GBR-2013-0014166

PATIENT
  Age: 64 Year
  Sex: Male

DRUGS (1)
  1. MORPHINE SULFATE (SIMILAR TO NDA 19-516) [Suspect]
     Indication: SUICIDE ATTEMPT
     Dosage: 1.2 G, SINGLE
     Route: 048

REACTIONS (2)
  - Intentional overdose [Fatal]
  - Cardiac arrest [Fatal]
